FAERS Safety Report 7676524-0 (Version None)
Quarter: 2011Q3

REPORT INFORMATION
  Report Type: 
  Country: None (occurrence: None)
  Receive Date: 20110811
  Receipt Date: 20110802
  Transmission Date: 20111222
  Serious: Yes (Other)
  Sender: FDA-Public Use
  Company Number: GB-JNJFOC-20110802971

PATIENT
  Age: 10 Year
  Sex: Male

DRUGS (3)
  1. CARBAMAZEPINE [Concomitant]
     Route: 065
  2. CONCERTA [Suspect]
     Indication: ATTENTION DEFICIT/HYPERACTIVITY DISORDER
     Route: 048
  3. ANTI-EPILEPTIC DRUG UNSPECIFIED [Concomitant]
     Route: 065

REACTIONS (2)
  - PARANOIA [None]
  - DEPRESSED MOOD [None]
